FAERS Safety Report 12351372 (Version 1)
Quarter: 2016Q2

REPORT INFORMATION
  Report Type: Spontaneous
  Country: US (occurrence: US)
  Receive Date: 20160510
  Receipt Date: 20160510
  Transmission Date: 20160815
  Serious: Yes (Other)
  Sender: FDA-Public Use
  Company Number: US-PFIZER INC-2016242434

PATIENT
  Sex: Female

DRUGS (1)
  1. DILANTIN [Suspect]
     Active Substance: PHENYTOIN
     Dosage: 100 MG, 3X/DAY

REACTIONS (7)
  - Weight increased [Unknown]
  - Mental disorder [Unknown]
  - Generalised tonic-clonic seizure [Unknown]
  - Joint swelling [Unknown]
  - Emotional disorder [Unknown]
  - Peripheral swelling [Unknown]
  - Overdose [Unknown]
